FAERS Safety Report 9553744 (Version 1)
Quarter: 2013Q3

REPORT INFORMATION
  Report Type: Report from Study
  Country: US (occurrence: US)
  Receive Date: 20130925
  Receipt Date: 20130925
  Transmission Date: 20140515
  Serious: Yes (Hospitalization)
  Sender: FDA-Public Use
  Company Number: US-ROCHE-1275216

PATIENT
  Sex: Male

DRUGS (7)
  1. PEGASYS [Suspect]
     Indication: CHRONIC HEPATITIS C
     Route: 065
     Dates: start: 1999
  2. PEGASYS [Suspect]
     Route: 065
     Dates: start: 2003
  3. PEGASYS [Suspect]
     Route: 058
     Dates: start: 20120609, end: 20121117
  4. RIBAVIRIN [Suspect]
     Indication: CHRONIC HEPATITIS C
     Route: 065
     Dates: start: 1999
  5. RIBAVIRIN [Suspect]
     Route: 065
     Dates: start: 2003
  6. RIBAVIRIN [Suspect]
     Route: 065
     Dates: start: 20120609, end: 20121117
  7. TELAPREVIR [Suspect]
     Indication: HEPATITIS C
     Route: 065
     Dates: start: 20120609, end: 20121117

REACTIONS (25)
  - Peritonitis [Unknown]
  - Abdominal distension [Unknown]
  - Arthritis [Unknown]
  - Joint hyperextension [Unknown]
  - Arthralgia [Unknown]
  - Musculoskeletal stiffness [Unknown]
  - Exostosis [Unknown]
  - Pain in extremity [Unknown]
  - Pain [Unknown]
  - Osteoarthritis [Unknown]
  - Influenza like illness [Unknown]
  - Fatigue [Unknown]
  - Hypersomnia [Unknown]
  - Rheumatoid factor increased [Unknown]
  - Nausea [Unknown]
  - White blood cell count decreased [Unknown]
  - Red blood cell count decreased [Unknown]
  - Platelet count decreased [Unknown]
  - Sleep disorder [Unknown]
  - Pain [Unknown]
  - Hyperammonaemia [Unknown]
  - Pain in extremity [Unknown]
  - Liver injury [Unknown]
  - Neck pain [Unknown]
  - Back pain [Unknown]
